FAERS Safety Report 8468737 (Version 16)
Quarter: 2020Q1

REPORT INFORMATION
  Report Type: Spontaneous
  Country: US (occurrence: US)
  Receive Date: 20120320
  Receipt Date: 20200101
  Transmission Date: 20200409
  Serious: Yes (Hospitalization, Disabling, Other)
  Sender: FDA-Public Use
  Company Number: US-ASTRAZENECA-2011SE32269

PATIENT
  Age: 55 Year
  Sex: Female
  Weight: 65.3 kg

DRUGS (86)
  1. NEXIUM [Suspect]
     Active Substance: ESOMEPRAZOLE MAGNESIUM
     Indication: GASTROOESOPHAGEAL REFLUX DISEASE
     Route: 048
     Dates: start: 20040101, end: 20141231
  2. NEXIUM [Suspect]
     Active Substance: ESOMEPRAZOLE MAGNESIUM
     Indication: GASTROOESOPHAGEAL REFLUX DISEASE
     Route: 048
     Dates: start: 20060126
  3. NEXIUM [Suspect]
     Active Substance: ESOMEPRAZOLE MAGNESIUM
     Indication: GASTROOESOPHAGEAL REFLUX DISEASE
     Route: 048
     Dates: start: 20000101, end: 20141231
  4. PANTOPRAZOLE [Suspect]
     Active Substance: PANTOPRAZOLE
     Indication: GASTROOESOPHAGEAL REFLUX DISEASE
     Dosage: 40 MG DAILY
     Route: 065
  5. MEDROL [Concomitant]
     Active Substance: METHYLPREDNISOLONE
     Indication: PERIPHERAL SWELLING
     Dates: start: 2003
  6. SYNTHROID [Concomitant]
     Active Substance: LEVOTHYROXINE SODIUM
     Indication: THYROID DISORDER
     Dates: start: 19961227
  7. ESTRACE/ESTRADIOL [Concomitant]
     Route: 048
     Dates: start: 201004
  8. AMITRIPTYLINE/ELAVIL [Concomitant]
     Indication: SLEEP DISORDER
     Dosage: 50.0MG UNKNOWN
     Route: 048
     Dates: start: 201004
  9. MAG-OX [Concomitant]
     Active Substance: MAGNESIUM OXIDE
     Route: 048
     Dates: start: 201004
  10. PROMETHAZINE HCL [Concomitant]
     Active Substance: PROMETHAZINE HYDROCHLORIDE
     Dosage: 1 TABLET 6-8 HRS AE PER NEED POST NAUSEA
  11. CYCLOBENZAPRINE. [Concomitant]
     Active Substance: CYCLOBENZAPRINE
     Dosage: 10.0MG UNKNOWN
     Route: 048
     Dates: start: 20051019
  12. METHYLTESTOSTER [Concomitant]
     Dates: start: 20011029
  13. NEXIUM [Suspect]
     Active Substance: ESOMEPRAZOLE MAGNESIUM
     Indication: GASTROOESOPHAGEAL REFLUX DISEASE
     Route: 048
     Dates: start: 20060925
  14. NEXIUM [Suspect]
     Active Substance: ESOMEPRAZOLE MAGNESIUM
     Indication: GASTROOESOPHAGEAL REFLUX DISEASE
     Route: 048
     Dates: start: 20050604
  15. PREVACID [Suspect]
     Active Substance: LANSOPRAZOLE
     Indication: GASTROOESOPHAGEAL REFLUX DISEASE
     Dosage: 40 MG DAILY GENERIC
     Route: 065
  16. MILK OF MAGNESIA [Concomitant]
     Active Substance: MAGNESIUM HYDROXIDE
  17. KLONOPIN [Concomitant]
     Active Substance: CLONAZEPAM
     Dosage: 1.0MG UNKNOWN
     Dates: start: 20030411
  18. SPIRONOLACTONE/ALDACTONE [Concomitant]
     Route: 048
     Dates: start: 201004
  19. SYNTHROID [Concomitant]
     Active Substance: LEVOTHYROXINE SODIUM
     Indication: THYROID DISORDER
     Dates: start: 20021105
  20. ESTRACE/ESTRADIOL [Concomitant]
     Dates: start: 20021105
  21. ACTONEL [Concomitant]
     Active Substance: RISEDRONATE SODIUM
     Dates: start: 20021223
  22. XENICAL [Concomitant]
     Active Substance: ORLISTAT
     Dates: start: 20030211
  23. CLINDAMYCIN. [Concomitant]
     Active Substance: CLINDAMYCIN
     Indication: SINUSITIS
     Dates: start: 20021105
  24. RESTORIL [Concomitant]
     Active Substance: TEMAZEPAM
     Dosage: 30.0MG AS REQUIRED
     Route: 048
     Dates: start: 201004
  25. KLONOPIN [Concomitant]
     Active Substance: CLONAZEPAM
     Dosage: 0.5 MG 1 HS AND PRN UNKNOWN
     Dates: start: 20060925
  26. KLONOPIN [Concomitant]
     Active Substance: CLONAZEPAM
     Dosage: 0.5MG UNKNOWN
     Route: 048
     Dates: start: 201004
  27. SPIRONOLACTONE/ALDACTONE [Concomitant]
     Dates: start: 20021105
  28. SPIRONOLACTONE/ALDACTONE [Concomitant]
     Dates: start: 20080317
  29. ACTIGALL/URSODIOL [Concomitant]
     Dates: start: 20080317
  30. AMITRIPTYLINE/ELAVIL [Concomitant]
     Indication: SLEEP DISORDER
     Dosage: 25.0MG UNKNOWN
     Dates: start: 20060925
  31. CLARITIN [Concomitant]
     Active Substance: LORATADINE
     Dates: start: 20021105
  32. FLEXERIL [Concomitant]
     Active Substance: CYCLOBENZAPRINE HYDROCHLORIDE
     Dates: start: 20021105
  33. NEXIUM [Suspect]
     Active Substance: ESOMEPRAZOLE MAGNESIUM
     Indication: GASTROOESOPHAGEAL REFLUX DISEASE
     Route: 048
     Dates: start: 200101, end: 200502
  34. PRILOSEC OTC [Suspect]
     Active Substance: OMEPRAZOLE MAGNESIUM
     Indication: GASTROOESOPHAGEAL REFLUX DISEASE
     Dosage: 20 MG DAILY
     Route: 048
  35. KLONOPIN [Concomitant]
     Active Substance: CLONAZEPAM
     Dosage: 1.0MG UNKNOWN
     Dates: start: 20021105
  36. LASIX [Concomitant]
     Active Substance: FUROSEMIDE
     Indication: DIURETIC THERAPY
     Dates: start: 19961227
  37. LASIX [Concomitant]
     Active Substance: FUROSEMIDE
     Indication: DIURETIC THERAPY
     Dates: start: 20021105
  38. LASIX [Concomitant]
     Active Substance: FUROSEMIDE
     Indication: SLEEP DISORDER
     Dates: start: 20080317
  39. SPIRONOLACTONE/ALDACTONE [Concomitant]
     Dates: start: 20060925
  40. SYNTHROID [Concomitant]
     Active Substance: LEVOTHYROXINE SODIUM
     Indication: THYROID DISORDER
     Route: 048
     Dates: start: 201004
  41. ACTIGALL/URSODIOL [Concomitant]
     Route: 048
     Dates: start: 201004
  42. PREMARIN [Concomitant]
     Active Substance: ESTROGENS, CONJUGATED
     Dates: start: 20060925
  43. LEXAPRO [Concomitant]
     Active Substance: ESCITALOPRAM OXALATE
     Dates: start: 20060925
  44. FOSAMAX [Concomitant]
     Active Substance: ALENDRONATE SODIUM
     Dosage: 70 MG PER WEEK
     Dates: start: 20060925
  45. QUESTRAN [Concomitant]
     Active Substance: CHOLESTYRAMINE
     Route: 048
     Dates: start: 201004
  46. KLONOPIN [Concomitant]
     Active Substance: CLONAZEPAM
     Dates: start: 19961227
  47. SYNTHROID [Concomitant]
     Active Substance: LEVOTHYROXINE SODIUM
     Indication: THYROID DISORDER
     Dates: start: 20080317
  48. ACTIGALL/URSODIOL [Concomitant]
     Dates: start: 20060925
  49. ZETIA [Concomitant]
     Active Substance: EZETIMIBE
     Dates: start: 20060925
  50. AMITRIPTYLINE/ELAVIL [Concomitant]
     Indication: SLEEP DISORDER
     Dosage: UNKNOWN
     Dates: start: 20020205
  51. AMITRIPTYLINE/ELAVIL [Concomitant]
     Indication: SLEEP DISORDER
     Dosage: 50.0MG UNKNOWN
     Dates: start: 20060925
  52. PAXIL [Concomitant]
     Active Substance: PAROXETINE HYDROCHLORIDE
     Dates: start: 20021230
  53. NORCO [Concomitant]
     Active Substance: ACETAMINOPHEN\HYDROCODONE BITARTRATE
     Dosage: 5 AND 325 MG TAKE 1 TO 2
  54. ALKA-SELTZER [Concomitant]
     Active Substance: ANHYDROUS CITRIC ACID\ASPIRIN\SODIUM BICARBONATE
     Dosage: 2 TABLETS ONCE DAILY.
     Dates: start: 201912
  55. PRILOSEC [Suspect]
     Active Substance: OMEPRAZOLE MAGNESIUM
     Indication: GASTROOESOPHAGEAL REFLUX DISEASE
     Dosage: 40 MG DAILY
     Route: 048
  56. PREVACID [Suspect]
     Active Substance: LANSOPRAZOLE
     Indication: GASTROOESOPHAGEAL REFLUX DISEASE
     Dosage: 40 MG DAILY
     Route: 065
  57. KLONOPIN [Concomitant]
     Active Substance: CLONAZEPAM
     Dosage: UNKNOWN
     Dates: start: 20080317
  58. LASIX [Concomitant]
     Active Substance: FUROSEMIDE
     Indication: SLEEP DISORDER
     Dates: start: 19961227
  59. SPIRONOLACTONE/ALDACTONE [Concomitant]
     Dates: start: 19961227
  60. SYNTHROID [Concomitant]
     Active Substance: LEVOTHYROXINE SODIUM
     Indication: THYROID DISORDER
     Dates: start: 20060925
  61. SYNTHROID [Concomitant]
     Active Substance: LEVOTHYROXINE SODIUM
     Indication: THYROID DISORDER
     Route: 048
  62. ACTIGALL/URSODIOL [Concomitant]
     Dates: start: 20021105
  63. AMITRIPTYLINE/ELAVIL [Concomitant]
     Indication: SLEEP DISORDER
     Dosage: 10.0MG UNKNOWN
     Dates: start: 19961227
  64. PROVERA [Concomitant]
     Active Substance: MEDROXYPROGESTERONE ACETATE
     Dosage: 10 MG FROM FIRST THROUGH THE TENTH DAY OF THE MONTH
     Dates: start: 19961227
  65. CELEBREX [Concomitant]
     Active Substance: CELECOXIB
     Route: 048
     Dates: start: 20021105
  66. CELEBREX [Concomitant]
     Active Substance: CELECOXIB
     Dates: start: 20010710
  67. NEXIUM [Suspect]
     Active Substance: ESOMEPRAZOLE MAGNESIUM
     Indication: GASTROOESOPHAGEAL REFLUX DISEASE
     Route: 048
     Dates: start: 2002, end: 2009
  68. NEXIUM [Suspect]
     Active Substance: ESOMEPRAZOLE MAGNESIUM
     Indication: GASTROOESOPHAGEAL REFLUX DISEASE
     Dosage: ONCE A DAY EVERYDAY
     Route: 048
     Dates: start: 2004, end: 2008
  69. MEDROL [Concomitant]
     Active Substance: METHYLPREDNISOLONE
     Indication: JOINT SWELLING
     Dates: start: 2003
  70. LASIX [Concomitant]
     Active Substance: FUROSEMIDE
     Indication: SLEEP DISORDER
     Route: 048
     Dates: start: 201004
  71. LASIX [Concomitant]
     Active Substance: FUROSEMIDE
     Indication: DIURETIC THERAPY
     Route: 048
     Dates: start: 201004
  72. ZOCOR [Concomitant]
     Active Substance: SIMVASTATIN
     Route: 048
     Dates: start: 201004
  73. DARVOCET [Concomitant]
     Active Substance: ACETAMINOPHEN\PROPOXYPHENE HYDROCHLORIDE
  74. CLINORIL [Concomitant]
     Active Substance: SULINDAC
  75. PREDNISONE. [Concomitant]
     Active Substance: PREDNISONE
     Dosage: 5.0MG UNKNOWN
     Dates: start: 20010525
  76. VITAMIN D [Concomitant]
     Active Substance: VITAMIN D NOS
     Indication: HYPOVITAMINOSIS
     Dates: start: 2015
  77. PREVACID 24 HR [Suspect]
     Active Substance: LANSOPRAZOLE
     Indication: GASTROOESOPHAGEAL REFLUX DISEASE
     Dosage: 20 MG DAILY
     Route: 065
  78. TUMS [Concomitant]
     Active Substance: CALCIUM CARBONATE
     Indication: DYSPEPSIA
  79. LASIX [Concomitant]
     Active Substance: FUROSEMIDE
     Indication: SLEEP DISORDER
     Dates: start: 20021105
  80. LASIX [Concomitant]
     Active Substance: FUROSEMIDE
     Indication: DIURETIC THERAPY
     Dates: start: 20080317
  81. ESTRACE/ESTRADIOL [Concomitant]
     Dates: start: 20080317
  82. PREMARIN [Concomitant]
     Active Substance: ESTROGENS, CONJUGATED
     Dates: start: 19961227
  83. ZAROXOLYN [Concomitant]
     Active Substance: METOLAZONE
     Dates: start: 20021105
  84. MOBIC [Concomitant]
     Active Substance: MELOXICAM
     Route: 048
  85. TRAMADOL. [Concomitant]
     Active Substance: TRAMADOL
     Route: 048
     Dates: start: 20050823
  86. CENTRUM SILVER [Concomitant]
     Active Substance: MINERALS\VITAMINS
     Dates: start: 2016

REACTIONS (16)
  - Osteoarthritis [Unknown]
  - Cellulitis [Unknown]
  - Arthritis [Unknown]
  - Chronic kidney disease [Not Recovered/Not Resolved]
  - End stage renal disease [Not Recovered/Not Resolved]
  - Lower limb fracture [Unknown]
  - Peripheral swelling [Unknown]
  - Ankle fracture [Unknown]
  - Renal injury [Unknown]
  - Fall [Unknown]
  - Osteoporosis [Unknown]
  - Pain [Unknown]
  - Acute kidney injury [Not Recovered/Not Resolved]
  - Joint dislocation [Unknown]
  - Depression [Unknown]
  - Joint effusion [Unknown]

NARRATIVE: CASE EVENT DATE: 2003
